FAERS Safety Report 8920980 (Version 4)
Quarter: 2013Q2

REPORT INFORMATION
  Report Type: Spontaneous
  Country: US (occurrence: US)
  Receive Date: 20121123
  Receipt Date: 20130527
  Transmission Date: 20140414
  Serious: No
  Sender: FDA-Public Use
  Company Number: US-009507513-1211USA008210

PATIENT
  Age: 20 Year
  Sex: Female
  Weight: 89.8 kg

DRUGS (2)
  1. IMPLANON [Suspect]
     Indication: CONTRACEPTION
     Dosage: 68 MG, 3 YEARS
     Route: 059
     Dates: start: 20120202, end: 20130104
  2. NEXPLANON [Concomitant]
     Dosage: UNK
     Route: 059
     Dates: start: 20130104

REACTIONS (2)
  - Device kink [Recovered/Resolved]
  - No adverse event [Unknown]
